FAERS Safety Report 26062604 (Version 1)
Quarter: 2025Q4

REPORT INFORMATION
  Report Type: Spontaneous
  Country: US (occurrence: None)
  Receive Date: 20251118
  Receipt Date: 20251118
  Transmission Date: 20260118
  Serious: Yes (Hospitalization)
  Sender: FDA-CTU
  Company Number: None

PATIENT
  Age: 56 Year
  Sex: Female

DRUGS (17)
  1. TACROLIMUS [Suspect]
     Active Substance: TACROLIMUS
     Indication: Transplant
     Dosage: FREQUENCY : TWICE A DAY;?
     Route: 048
     Dates: start: 20250708
  2. MYCOPHENOLATE MOFETIL [Concomitant]
     Active Substance: MYCOPHENOLATE MOFETIL
  3. CARVEDILOL 12.5MG TABLETS [Concomitant]
  4. ONDANSETRON ODT SMG TABLETS [Concomitant]
  5. FUROSEMIDE [Concomitant]
     Active Substance: FUROSEMIDE
  6. FLUTICASONE 50MCG NASAL SP (120) RX [Concomitant]
  7. TACROLIMUS [Concomitant]
     Active Substance: TACROLIMUS
  8. ASPIRIN 81 MG CHEWABLE TABLETS [Concomitant]
  9. CLINDAMYCIN [Concomitant]
     Active Substance: CLINDAMYCIN
  10. ATORVASTATIN CALCIUM [Concomitant]
     Active Substance: ATORVASTATIN CALCIUM
  11. NALOXONE 4MG/0.1 ML NAS SPRAY 2 PACK [Concomitant]
  12. ACETAMINOPHEN\HYDROCODONE [Concomitant]
     Active Substance: ACETAMINOPHEN\HYDROCODONE
  13. VITAMIN D2 50,000IU (ERGO) CAP RX [Concomitant]
  14. BRIMONIDINE 0.2% OPHTH SOLN 5ML [Concomitant]
  15. HUMALOG INSULIN (VL-7510) 10ML [Concomitant]
  16. DIAZEPAM [Concomitant]
     Active Substance: DIAZEPAM
  17. BUPROPION XL [Concomitant]
     Active Substance: BUPROPION HYDROCHLORIDE

REACTIONS (2)
  - Pain in extremity [None]
  - Stenosis [None]
